FAERS Safety Report 5248629-5 (Version None)
Quarter: 2007Q1

REPORT INFORMATION
  Report Type: 
  Country: None (occurrence: None)
  Receive Date: 20070222
  Receipt Date: 20070217
  Transmission Date: 20070707
  Serious: No
  Sender: FDA-Public Use
  Company Number: TPA2007A00291

PATIENT
  Sex: Male

DRUGS (1)
  1. ACTOPLUS MET [Suspect]
     Dosage: SEE IMAGE
     Dates: end: 20070215

REACTIONS (5)
  - DISORIENTATION [None]
  - IMPRISONMENT [None]
  - NONSPECIFIC REACTION [None]
  - SELF-MEDICATION [None]
  - THEFT [None]
